FAERS Safety Report 10426526 (Version 4)
Quarter: 2014Q4

REPORT INFORMATION
  Report Type: Spontaneous
  Country: US (occurrence: US)
  Receive Date: 20140903
  Receipt Date: 20141112
  Transmission Date: 20150528
  Serious: No
  Sender: FDA-Public Use
  Company Number: US-PFIZER INC-2014242517

PATIENT
  Age: 83 Year
  Sex: Female
  Weight: 53.52 kg

DRUGS (3)
  1. PROLENSA [Concomitant]
     Active Substance: BROMFENAC SODIUM
     Indication: INFLAMMATION
     Dosage: 1 GTT, DAILY
     Dates: start: 201405
  2. VFEND [Suspect]
     Active Substance: VORICONAZOLE
     Indication: EYE INFECTION FUNGAL
     Dosage: 200 MG, 2X/DAY
     Route: 048
     Dates: start: 20140730
  3. VFEND [Suspect]
     Active Substance: VORICONAZOLE
     Indication: EYE INFECTION FUNGAL
     Dosage: 1 GTT, EVERY 2 HOURS
     Route: 047
     Dates: start: 20140516

REACTIONS (9)
  - Visual impairment [Not Recovered/Not Resolved]
  - Pain [Unknown]
  - Visual acuity reduced [Unknown]
  - Visual impairment [Not Recovered/Not Resolved]
  - Herpes zoster [Unknown]
  - Malaise [Unknown]
  - Intentional product use issue [Unknown]
  - Charles Bonnet syndrome [Not Recovered/Not Resolved]
  - Vision blurred [Recovering/Resolving]

NARRATIVE: CASE EVENT DATE: 20140516
